FAERS Safety Report 8596029-2 (Version None)
Quarter: 2012Q3

REPORT INFORMATION
  Report Type: 
  Country: None (occurrence: None)
  Receive Date: 20120815
  Receipt Date: 20120810
  Transmission Date: 20120928
  Serious: Yes (Hospitalization)
  Sender: FDA-Public Use
  Company Number: US-BAYER-2011-012161

PATIENT
  Age: 70 Year
  Sex: Male
  Weight: 122.45 kg

DRUGS (4)
  1. CARVEDILOL [Concomitant]
     Dosage: 25 UNK, UNK
  2. LISINOPRIL [Concomitant]
  3. SIMVASTATIN [Concomitant]
  4. ALEVE (CAPLET) [Suspect]
     Indication: BACK PAIN
     Dosage: 220 MG, ONCE
     Route: 048
     Dates: start: 20110101, end: 20110101

REACTIONS (7)
  - HYPERSENSITIVITY [None]
  - DYSPNOEA [None]
  - PRURITUS [None]
  - PALLOR [None]
  - FEELING HOT [None]
  - DIZZINESS [None]
  - FALL [None]
